FAERS Safety Report 25385995 (Version 1)
Quarter: 2025Q2

REPORT INFORMATION
  Report Type: Report from Study
  Country: IT (occurrence: IT)
  Receive Date: 20250602
  Receipt Date: 20250602
  Transmission Date: 20250716
  Serious: Yes (Death, Life-Threatening, Hospitalization)
  Sender: RANBAXY
  Company Number: IT-SUN PHARMACEUTICAL INDUSTRIES LTD-2025R1-510066

PATIENT
  Age: 77 Year
  Sex: Male

DRUGS (3)
  1. ASPIRIN [Suspect]
     Active Substance: ASPIRIN
     Indication: Overdose
     Dosage: 100 MILLIGRAM, DAILY
     Route: 065
     Dates: start: 20150103
  2. FONDAPARINUX [Suspect]
     Active Substance: FONDAPARINUX
     Indication: Overdose
     Dosage: 2.5 MILLIGRAM, DAILY
     Route: 065
     Dates: start: 20150103
  3. VITAMIN K [Suspect]
     Active Substance: PHYTONADIONE
     Indication: Overdose
     Route: 065
     Dates: start: 20150108

REACTIONS (1)
  - Treatment failure [Fatal]
